FAERS Safety Report 7010125-2 (Version None)
Quarter: 2010Q3

REPORT INFORMATION
  Report Type: 
  Country: None (occurrence: None)
  Receive Date: 20100923
  Receipt Date: 20100913
  Transmission Date: 20110219
  Serious: Yes (Hospitalization)
  Sender: FDA-Public Use
  Company Number: FR-NOVOPROD-314901

PATIENT
  Age: 60 Year
  Sex: Female

DRUGS (6)
  1. VICTOZA [Suspect]
     Indication: PRODUCT USED FOR UNKNOWN INDICATION
     Dosage: 0.6 MG, QD
     Route: 058
     Dates: start: 20100618
  2. VICTOZA [Suspect]
     Dosage: 1.2 MG, UNK
     Route: 058
  3. METFORMIN [Concomitant]
  4. JANUMET [Concomitant]
  5. GALVUS [Concomitant]
  6. DIAMICRON [Concomitant]

REACTIONS (1)
  - INTESTINAL HAEMORRHAGE [None]
